FAERS Safety Report 5690054-7 (Version None)
Quarter: 2008Q1

REPORT INFORMATION
  Report Type: 
  Country: None (occurrence: None)
  Receive Date: 20080331
  Receipt Date: 20080331
  Transmission Date: 20080703
  Serious: Yes (Other)
  Sender: FDA-Public Use
  Company Number: None

PATIENT
  Age: 9 Year
  Sex: Female
  Weight: 72.5755 kg

DRUGS (1)
  1. SINGULAIR [Suspect]
     Indication: ASTHMA
     Dosage: 5MG DAILY PO
     Route: 048
     Dates: start: 20030809, end: 20080327

REACTIONS (8)
  - AGGRESSION [None]
  - ANXIETY [None]
  - ANXIETY DISORDER [None]
  - DISTURBANCE IN ATTENTION [None]
  - FEAR [None]
  - INSOMNIA [None]
  - SLEEP APNOEA SYNDROME [None]
  - SLEEP DISORDER [None]
